FAERS Safety Report 6692692-1 (Version None)
Quarter: 2010Q2

REPORT INFORMATION
  Report Type: 
  Country: None (occurrence: None)
  Receive Date: 20100422
  Receipt Date: 20100409
  Transmission Date: 20101027
  Serious: Yes (Hospitalization)
  Sender: FDA-Public Use
  Company Number: FR-PFIZER INC-2010018087

PATIENT
  Age: 55 Year
  Sex: Female
  Weight: 72.3 kg

DRUGS (1)
  1. SUNITINIB MALATE [Suspect]
     Indication: METASTASES TO CENTRAL NERVOUS SYSTEM
     Dosage: 50 MG, 1X/DAY
     Dates: start: 20100203, end: 20100216

REACTIONS (2)
  - DYSPNOEA [None]
  - PLEURAL EFFUSION [None]
